FAERS Safety Report 4265841-2 (Version None)
Quarter: 2004Q1

REPORT INFORMATION
  Report Type: 
  Country: None (occurrence: None)
  Receive Date: 20040107
  Receipt Date: 20040107
  Transmission Date: 20041129
  Serious: Yes (Other)
  Sender: FDA-Public Use
  Company Number: None

PATIENT
  Age: 37 Year
  Sex: Female
  Weight: 68.0396 kg

DRUGS (8)
  1. ROCEPHIN [Suspect]
     Indication: OSTEOMYELITIS
     Dosage: 1 G IVP Q24 H
     Route: 042
     Dates: start: 20031208, end: 20031228
  2. ATIVIAN [Concomitant]
  3. HYDROCHLOROTHIAZIDE [Concomitant]
  4. IBUPROFEN [Concomitant]
  5. SYNTHROID [Concomitant]
  6. HUMULIN 70/30 [Concomitant]
  7. CLINDAMYCIN [Concomitant]
  8. NS/HEP [Concomitant]

REACTIONS (4)
  - DYSPNOEA [None]
  - PARAESTHESIA [None]
  - PRURITUS [None]
  - TREATMENT NONCOMPLIANCE [None]
